FAERS Safety Report 14770053 (Version 2)
Quarter: 2018Q3

REPORT INFORMATION
  Report Type: Spontaneous
  Country: ES (occurrence: ES)
  Receive Date: 20180417
  Receipt Date: 20180724
  Transmission Date: 20181010
  Serious: Yes (Life-Threatening, Hospitalization)
  Sender: FDA-Public Use
  Company Number: ES-TEVA-2018-ES-881364

PATIENT
  Age: 72 Year
  Sex: Male
  Weight: 82 kg

DRUGS (4)
  1. PROPOFOL (2373A) [Concomitant]
     Indication: INDUCTION OF ANAESTHESIA
     Route: 042
     Dates: start: 20170621, end: 20170621
  2. AMOXICILINA/ACIDO CLAVULANICO [Suspect]
     Active Substance: AMOXICILLIN\CLAVULANATE POTASSIUM
     Indication: PROPHYLAXIS
     Dosage: 2 GBQ DAILY;
     Route: 042
     Dates: start: 20170621, end: 20170621
  3. REMIFENTANILO (2750A) [Concomitant]
     Indication: INDUCTION OF ANAESTHESIA
     Route: 042
     Dates: start: 20170621, end: 20170621
  4. ROCURONIO BROMURO (2714BR) [Concomitant]
     Indication: INDUCTION OF ANAESTHESIA
     Route: 042
     Dates: start: 20170621, end: 20170621

REACTIONS (1)
  - Anaphylactic shock [Recovered/Resolved]

NARRATIVE: CASE EVENT DATE: 20170621
